FAERS Safety Report 14526760 (Version 2)
Quarter: 2021Q4

REPORT INFORMATION
  Report Type: Report from Study
  Country: FR (occurrence: FR)
  Receive Date: 20180213
  Receipt Date: 20211021
  Transmission Date: 20220303
  Serious: Yes (Hospitalization, Other)
  Sender: FDA-Public Use
  Company Number: FR-SHIRE-FR201801465

PATIENT
  Sex: Female

DRUGS (9)
  1. HYDROCORTISONE [Suspect]
     Active Substance: HYDROCORTISONE
     Indication: Acute lymphocytic leukaemia
     Dosage: 12 MILLIGRAM,  UNK
     Route: 037
     Dates: start: 20171113, end: 20171211
  2. METHOTREXATE [Suspect]
     Active Substance: METHOTREXATE
     Indication: Acute lymphocytic leukaemia
     Dosage: 15 MILLIGRAM, UNK
     Route: 037
     Dates: start: 20171113, end: 20171211
  3. CYTARABINE [Suspect]
     Active Substance: CYTARABINE
     Indication: Acute lymphocytic leukaemia
     Dosage: 30 MILLIGRAM, UNK
     Route: 037
     Dates: start: 20171113, end: 20171211
  4. CYTARABINE [Suspect]
     Active Substance: CYTARABINE
     Dosage: 47.5 MILLIGRAM, UNK
     Route: 042
     Dates: start: 20171113, end: 20171223
  5. MERCAPTOPURINE [Suspect]
     Active Substance: MERCAPTOPURINE
     Indication: Acute lymphocytic leukaemia
     Dosage: 50 (AND 25 EVERY OTHER DAY), UNK
     Route: 048
     Dates: start: 20171110, end: 20171224
  6. PEGASPARGASE [Suspect]
     Active Substance: PEGASPARGASE
     Indication: Acute lymphocytic leukaemia
     Dosage: 1575 INTERNATIONAL UNIT, UNK
     Route: 042
     Dates: start: 20171124, end: 20171124
  7. CYCLOPHOSPHAMIDE [Suspect]
     Active Substance: CYCLOPHOSPHAMIDE
     Indication: Acute lymphocytic leukaemia
     Dosage: 640 MILLIGRAM, UNK
     Route: 042
     Dates: start: 20171110, end: 20171208
  8. VINCRISTINE [Suspect]
     Active Substance: VINCRISTINE
     Indication: Acute lymphocytic leukaemia
     Dosage: 0.05 MILLIGRAM, UNK
     Route: 042
     Dates: start: 20171124, end: 20171201
  9. BACTRIM [Concomitant]
     Active Substance: SULFAMETHOXAZOLE\TRIMETHOPRIM
     Indication: Infection
     Dosage: UNK

REACTIONS (1)
  - Febrile bone marrow aplasia [Unknown]

NARRATIVE: CASE EVENT DATE: 20171218
